FAERS Safety Report 5941870-5 (Version None)
Quarter: 2008Q4

REPORT INFORMATION
  Report Type: 
  Country: None (occurrence: None)
  Receive Date: 20081105
  Receipt Date: 20081029
  Transmission Date: 20090506
  Serious: Yes (Hospitalization)
  Sender: FDA-Public Use
  Company Number: US-BAYER-200836483NA

PATIENT
  Age: 27 Year
  Sex: Female

DRUGS (3)
  1. BETASERON [Suspect]
     Indication: MULTIPLE SCLEROSIS
  2. AVONEX [Concomitant]
     Indication: MULTIPLE SCLEROSIS
     Route: 030
     Dates: start: 20070426, end: 20071214
  3. AVONEX [Concomitant]
     Route: 030
     Dates: start: 20080722

REACTIONS (2)
  - DYSARTHRIA [None]
  - VISUAL ACUITY REDUCED [None]
